FAERS Safety Report 4519084-5 (Version None)
Quarter: 2004Q4

REPORT INFORMATION
  Report Type: 
  Country: None (occurrence: None)
  Receive Date: 20041206
  Receipt Date: 20041123
  Transmission Date: 20050328
  Serious: Yes (Congenital Anomaly, Other)
  Sender: FDA-Public Use
  Company Number: 200414436FR

PATIENT
  Age: 15 Day
  Sex: Male

DRUGS (4)
  1. LOVENOX [Suspect]
     Indication: ANTIPHOSPHOLIPID SYNDROME
     Route: 064
     Dates: start: 20040301, end: 20040726
  2. ASPEGIC 325 [Suspect]
     Indication: ANTIPHOSPHOLIPID SYNDROME
     Route: 064
     Dates: start: 20031106, end: 20040710
  3. ZITHROMAX [Concomitant]
     Route: 064
     Dates: end: 20040726
  4. LACTULOSE [Concomitant]
     Route: 064
     Dates: end: 20040726

REACTIONS (15)
  - CARDIAC DISORDER [None]
  - CONGENITAL ATRIAL SEPTAL DEFECT [None]
  - CONGENITAL MEGAURETER [None]
  - DRUG EXPOSURE DURING PREGNANCY [None]
  - ESCHERICHIA INFECTION [None]
  - FISTULA [None]
  - GASTROINTESTINAL DISORDER [None]
  - GASTROOESOPHAGEAL REFLUX DISEASE [None]
  - NEONATAL DISORDER [None]
  - NEONATAL INFECTION [None]
  - NEPHROTIC SYNDROME [None]
  - PYELONEPHRITIS [None]
  - SEPTIC SHOCK [None]
  - URINARY TRACT MALFORMATION [None]
  - VOLVULUS OF BOWEL [None]
